FAERS Safety Report 5967433-3 (Version None)
Quarter: 2008Q4

REPORT INFORMATION
  Report Type: 
  Country: None (occurrence: None)
  Receive Date: 20081125
  Receipt Date: 20081118
  Transmission Date: 20090506
  Serious: Yes (Death)
  Sender: FDA-Public Use
  Company Number: MX-GILEAD-2008-0019166

PATIENT
  Sex: Female

DRUGS (1)
  1. HEPSERA [Suspect]
     Indication: DRUG RESISTANCE
     Route: 048
     Dates: start: 20050101, end: 20071210

REACTIONS (1)
  - ARRHYTHMIA [None]
